FAERS Safety Report 10074273 (Version 4)
Quarter: 2014Q4

REPORT INFORMATION
  Report Type: Spontaneous
  Country: GR (occurrence: GR)
  Receive Date: 20140412
  Receipt Date: 20141127
  Transmission Date: 20150528
  Serious: Yes (Other)
  Sender: FDA-Public Use
  Company Number: GR-AMGEN-GRCSP2014025352

PATIENT
  Age: 73 Year
  Sex: Female

DRUGS (1)
  1. PROLIA [Suspect]
     Active Substance: DENOSUMAB
     Indication: OSTEOPOROSIS
     Dosage: 60 MG, Q6MO
     Route: 065
     Dates: start: 20140124

REACTIONS (7)
  - Inflammation [Not Recovered/Not Resolved]
  - Osteonecrosis of jaw [Not Recovered/Not Resolved]
  - Pain [Not Recovered/Not Resolved]
  - Abscess [Not Recovered/Not Resolved]
  - Tooth extraction [Not Recovered/Not Resolved]
  - Pain in jaw [Unknown]
  - Exostosis of jaw [Unknown]

NARRATIVE: CASE EVENT DATE: 2014
